FAERS Safety Report 6694362-2 (Version None)
Quarter: 2010Q2

REPORT INFORMATION
  Report Type: 
  Country: None (occurrence: None)
  Receive Date: 20100423
  Receipt Date: 20100420
  Transmission Date: 20101027
  Serious: Yes (Other)
  Sender: FDA-Public Use
  Company Number: FR-WYE-G05820510

PATIENT
  Sex: Male
  Weight: 82 kg

DRUGS (10)
  1. TORISEL [Suspect]
     Indication: RENAL CANCER METASTATIC
     Route: 042
     Dates: start: 20100108, end: 20100212
  2. MIANSERIN [Concomitant]
     Route: 048
  3. TADENAN [Concomitant]
     Indication: VERTIGO
     Dosage: 150 MG TOTAL DAILY
     Route: 048
  4. RAMIPRIL [Concomitant]
     Indication: HYPERTENSION
     Route: 048
     Dates: start: 20100205
  5. RAMIPRIL [Concomitant]
     Indication: PROTEINURIA
  6. APROVEL [Concomitant]
     Indication: HYPERTENSION
     Route: 048
  7. APROVEL [Concomitant]
     Indication: PROTEINURIA
  8. NEXIUM [Concomitant]
     Indication: GASTRITIS
     Route: 048
  9. HEPARIN [Concomitant]
     Indication: THROMBOSIS PROPHYLAXIS
     Dosage: UNKNOWN
  10. ALLOPURINOL [Concomitant]
     Indication: HYPERURICAEMIA
     Route: 048

REACTIONS (4)
  - COUGH [None]
  - DYSPNOEA [None]
  - FATIGUE [None]
  - PYREXIA [None]
